FAERS Safety Report 7035430-5 (Version None)
Quarter: 2010Q4

REPORT INFORMATION
  Report Type: 
  Country: None (occurrence: None)
  Receive Date: 20101008
  Receipt Date: 20100930
  Transmission Date: 20110411
  Serious: Yes (Other)
  Sender: FDA-Public Use
  Company Number: BR-PFIZER INC-2010081445

PATIENT
  Age: 74 Year
  Sex: Female
  Weight: 72 kg

DRUGS (3)
  1. LIPITOR [Suspect]
     Indication: BLOOD CHOLESTEROL
     Dosage: 20 MG, 1X/DAY, AT NIGHT
     Route: 048
     Dates: start: 20100101
  2. SYNTHROID [Concomitant]
     Indication: HYPOTHYROIDISM
     Dosage: 50 MG, UNK
  3. PAROXETINE [Concomitant]
     Dosage: UNK

REACTIONS (17)
  - ABDOMINAL PAIN UPPER [None]
  - APHONIA [None]
  - BLOOD CHOLESTEROL ABNORMAL [None]
  - DIZZINESS [None]
  - DRY THROAT [None]
  - DYSPHONIA [None]
  - DYSPNOEA [None]
  - FACIAL PAIN [None]
  - GINGIVAL PAIN [None]
  - HEADACHE [None]
  - NASAL CONGESTION [None]
  - OROPHARYNGEAL PAIN [None]
  - PALATAL DISORDER [None]
  - PRURITUS [None]
  - PYREXIA [None]
  - SCAB [None]
  - SKIN DISCOLOURATION [None]
